FAERS Safety Report 10471250 (Version 1)
Quarter: 2014Q3

REPORT INFORMATION
  Report Type: Spontaneous
  Country: US (occurrence: US)
  Receive Date: 20140923
  Receipt Date: 20140923
  Transmission Date: 20150326
  Serious: No
  Sender: FDA-Public Use
  Company Number: US-PFIZER INC-2014261141

PATIENT
  Age: 53 Year
  Sex: Female
  Weight: 102.4 kg

DRUGS (2)
  1. LYRICA [Suspect]
     Active Substance: PREGABALIN
     Indication: FIBROMYALGIA
     Dosage: 150 MG, 3X/DAY
     Dates: start: 2007
  2. CYMBALTA [Concomitant]
     Active Substance: DULOXETINE HYDROCHLORIDE
     Dosage: 120 MG, 2X/DAY

REACTIONS (3)
  - Pain [Not Recovered/Not Resolved]
  - Activities of daily living impaired [Unknown]
  - Hypokinesia [Unknown]

NARRATIVE: CASE EVENT DATE: 201405
